FAERS Safety Report 9288396 (Version 1)
Quarter: 2013Q2

REPORT INFORMATION
  Report Type: Spontaneous
  Country: US (occurrence: None)
  Receive Date: 20130513
  Receipt Date: 20130513
  Transmission Date: 20140414
  Serious: Yes (Disabling, Other)
  Sender: FDA-Public Use
  Company Number: None

PATIENT
  Age: 68 Year
  Sex: Female
  Weight: 101.15 kg

DRUGS (1)
  1. SIMVASTATIN [Suspect]
     Indication: BLOOD CHOLESTEROL INCREASED
     Dosage: 20 MG, 1 TABLET @ BEDTIME
     Dates: start: 19960601, end: 20130601

REACTIONS (8)
  - Pain [None]
  - Muscular weakness [None]
  - Arthralgia [None]
  - Insomnia [None]
  - Activities of daily living impaired [None]
  - Dysstasia [None]
  - Urinary incontinence [None]
  - Lymphoedema [None]
